FAERS Safety Report 5971543-4 (Version None)
Quarter: 2008Q4

REPORT INFORMATION
  Report Type: 
  Country: None (occurrence: None)
  Receive Date: 20081201
  Receipt Date: 20081010
  Transmission Date: 20090506
  Serious: No
  Sender: FDA-Public Use
  Company Number: US-AMGEN-KDL298070

PATIENT
  Sex: Female
  Weight: 86.3 kg

DRUGS (4)
  1. ENBREL [Suspect]
     Indication: RHEUMATOID ARTHRITIS
     Route: 058
     Dates: start: 20080501
  2. PREDNISONE TAB [Concomitant]
     Route: 048
     Dates: start: 20080301
  3. PROZAC [Concomitant]
     Dates: start: 20080701
  4. VITAMIN TAB [Concomitant]
     Dates: start: 20080401

REACTIONS (3)
  - FATIGUE [None]
  - NASOPHARYNGITIS [None]
  - VOMITING IN PREGNANCY [None]
